FAERS Safety Report 5031745-0 (Version None)
Quarter: 2006Q2

REPORT INFORMATION
  Report Type: 
  Country: None (occurrence: None)
  Receive Date: 20060619
  Receipt Date: 20060612
  Transmission Date: 20061013
  Serious: Yes (Other)
  Sender: FDA-Public Use
  Company Number: 2006-05-1305

PATIENT
  Age: 65 Year
  Sex: Male

DRUGS (3)
  1. VIRAFERONPEG [Suspect]
     Indication: HEPATITIS C
     Dosage: 135 UG QWK SUBCUTANEOUS
     Route: 058
     Dates: start: 20060321
  2. REBETOL [Concomitant]
     Indication: HEPATITIS C
     Dosage: 1200 MG QD ORAL
     Route: 048
     Dates: start: 20060321
  3. IRBESARTAN [Concomitant]

REACTIONS (7)
  - ANORECTAL DISORDER [None]
  - DEFAECATION URGENCY [None]
  - DIARRHOEA [None]
  - FREQUENT BOWEL MOVEMENTS [None]
  - HAEMORRHOIDS [None]
  - PROCTALGIA [None]
  - PROCTITIS [None]
